FAERS Safety Report 18617989 (Version 3)
Quarter: 2025Q3

REPORT INFORMATION
  Report Type: Spontaneous
  Country: EU (occurrence: EU)
  Receive Date: 20201215
  Receipt Date: 20250724
  Transmission Date: 20251021
  Serious: Yes (Hospitalization, Other)
  Sender: MYLAN
  Company Number: EU-ADIENNEP-2020AD000539

PATIENT
  Age: 51 Year
  Sex: Male

DRUGS (24)
  1. METHOTREXATE [Suspect]
     Active Substance: METHOTREXATE
     Indication: Bone marrow conditioning regimen
     Dosage: 15 MILLIGRAM/SQ. METER, QD (METHOTREXATE 15MG/M2 DAILY ON DAY +1 AND 10MG/M2 DAILY ON DAY +3 AND+6)
  2. METHOTREXATE [Suspect]
     Active Substance: METHOTREXATE
     Indication: Allogenic stem cell transplantation
     Dosage: 10 MG/M2, QD (METHOTREXATE 15MG/M2 DAILY ON DAY +1 AND 10MG/M2 DAILY ON DAY +3 AND+6)
  3. FLUDARABINE [Suspect]
     Active Substance: FLUDARABINE PHOSPHATE
     Indication: Allogenic stem cell transplantation
     Dosage: FLUDARABINE 50MG/M2 DAILY FROM DAYS -5 TO -3
  4. FLUDARABINE [Suspect]
     Active Substance: FLUDARABINE PHOSPHATE
     Indication: Bone marrow conditioning regimen
     Dosage: FLUDARABINE 25MG/M2 DAILY ON DAYS -6 TO -5
  5. FLUDARABINE [Suspect]
     Active Substance: FLUDARABINE PHOSPHATE
     Indication: Prophylaxis against graft versus host disease
     Dosage: 150 MILLIGRAM/SQ. METER, QD
  6. BUSULFAN [Suspect]
     Active Substance: BUSULFAN
     Indication: Bone marrow conditioning regimen
     Dosage: BUSULFAN 3.2MG/KG DAILY FROM DAYS -5 TO -3
  7. BUSULFAN [Suspect]
     Active Substance: BUSULFAN
     Indication: Allogenic stem cell transplantation
  8. CYCLOSPORINE [Suspect]
     Active Substance: CYCLOSPORINE
     Indication: Allogenic stem cell transplantation
     Dosage: 2 MILLIGRAM/KILOGRAM, QD (AT DOSE OF 2MG/KG ON DAY -3 AND ADJUSTED TO PLASMA TARGET LEVEL 200-300 UG/L.)
  9. CYCLOSPORINE [Suspect]
     Active Substance: CYCLOSPORINE
     Indication: Bone marrow conditioning regimen
  10. CYCLOPHOSPHAMIDE [Suspect]
     Active Substance: CYCLOPHOSPHAMIDE
     Indication: Allogenic stem cell transplantation
     Dosage: 25 MG/KG, QD (CYCLOPHOSPHAMIDE 25MG/KG DAILY ON DAYS -6 AND -5) (25 MG/KG DAY -4 AND -3 (2ND))
  11. CYCLOPHOSPHAMIDE [Suspect]
     Active Substance: CYCLOPHOSPHAMIDE
     Indication: Bone marrow conditioning regimen
     Dosage: 2 MILLIGRAM/KILOGRAM, QD (2 MG/KG DAY -3 (1ST))
  12. CYCLOPHOSPHAMIDE [Suspect]
     Active Substance: CYCLOPHOSPHAMIDE
     Indication: Prophylaxis against graft versus host disease
  13. CYCLOPHOSPHAMIDE [Suspect]
     Active Substance: CYCLOPHOSPHAMIDE
  14. MELPHALAN [Suspect]
     Active Substance: MELPHALAN
     Indication: Allogenic stem cell transplantation
     Dosage: MELPHALAN 25MG/M2 DAILY ON DAYS -4 AND -3
  15. MELPHALAN [Suspect]
     Active Substance: MELPHALAN
     Indication: Bone marrow conditioning regimen
  16. MELPHALAN [Suspect]
     Active Substance: MELPHALAN
     Indication: Immunosuppressant drug therapy
  17. THIOTEPA [Suspect]
     Active Substance: THIOTEPA
     Indication: Allogenic stem cell transplantation
     Dosage: 5 MG/KG, QD (THIOTEPA 5MG/KG DAILY ON DAYS -7 AND -6)
  18. THIOTEPA [Suspect]
     Active Substance: THIOTEPA
     Indication: Bone marrow conditioning regimen
  19. LAPINE T-LYMPHOCYTE IMMUNE GLOBULIN [Suspect]
     Active Substance: LAPINE T-LYMPHOCYTE IMMUNE GLOBULIN
     Indication: Allogenic stem cell transplantation
     Dosage: 2.5 MG/KG, QD (ATG 2.5MG/KG DAILY ON DAY -2 AND 1.25MG/KG DAILY ON DAYS +7)
  20. LAPINE T-LYMPHOCYTE IMMUNE GLOBULIN [Suspect]
     Active Substance: LAPINE T-LYMPHOCYTE IMMUNE GLOBULIN
     Indication: Bone marrow conditioning regimen
     Dosage: 3.75 MG/KG, QD (ATG 3.75MG/KG DAILY ON DAYS -2 AND -1)
  21. LAPINE T-LYMPHOCYTE IMMUNE GLOBULIN [Suspect]
     Active Substance: LAPINE T-LYMPHOCYTE IMMUNE GLOBULIN
     Dosage: 1.25 MG/KG, QD (ATG 2.5MG/KG DAILY ON DAY -2 AND 1.25MG/KG DAILY ON DAYS +7)
  22. THYMOCYTE IMMUNE GLOBULIN NOS [Suspect]
     Active Substance: THYMOCYTE IMMUNE GLOBULIN NOS
     Indication: Bone marrow conditioning regimen
     Dosage: 3.75 MG/KG DAY -2 AND -1
  23. THYMOCYTE IMMUNE GLOBULIN NOS [Suspect]
     Active Substance: THYMOCYTE IMMUNE GLOBULIN NOS
     Dosage: 1.25 MG/KG DAY +7
  24. THYMOCYTE IMMUNE GLOBULIN NOS [Suspect]
     Active Substance: THYMOCYTE IMMUNE GLOBULIN NOS
     Dosage: 2.5 MG/KG DAY -2 (2ND)

REACTIONS (13)
  - Acute graft versus host disease [Recovered/Resolved]
  - Sepsis [Recovered/Resolved]
  - Mucosal inflammation [Recovered/Resolved]
  - BK virus infection [Recovered/Resolved]
  - Cystitis [Unknown]
  - Tuberculosis of genitourinary system [Unknown]
  - Neutropenia [Recovered/Resolved]
  - Cystitis viral [Recovered/Resolved]
  - Cytopenia [Recovered/Resolved]
  - Cytomegalovirus test positive [Recovered/Resolved]
  - Thrombocytopenia [Recovered/Resolved]
  - Polyomavirus viraemia [Recovered/Resolved]
  - Product use in unapproved indication [Unknown]
